FAERS Safety Report 10624846 (Version 4)
Quarter: 2020Q4

REPORT INFORMATION
  Report Type: Spontaneous
  Country: JP (occurrence: JP)
  Receive Date: 20141204
  Receipt Date: 20201104
  Transmission Date: 20210113
  Serious: Yes (Death, Other)
  Sender: FDA-Public Use
  Company Number: JP-BRISTOL-MYERS SQUIBB COMPANY-21670997

PATIENT
  Age: 77 Year
  Sex: Female
  Weight: 45 kg

DRUGS (9)
  1. ELIQUIS [Suspect]
     Active Substance: APIXABAN
     Indication: THROMBOSIS PROPHYLAXIS
     Dosage: 2.5 MG, BID
     Route: 048
     Dates: start: 20141017, end: 20141120
  2. MICARDIS [Concomitant]
     Active Substance: TELMISARTAN
     Indication: PROPHYLAXIS
     Dosage: 40 MG, QD
     Route: 048
     Dates: end: 20141120
  3. MAINTATE [Concomitant]
     Active Substance: BISOPROLOL FUMARATE
     Indication: PROPHYLAXIS
     Dosage: 1.25 MG, QD
     Route: 048
     Dates: start: 20141017, end: 20141120
  4. VITAMEDIN [CYANOCOBALAMIN;PYRIDOXINE HYDROCHLORIDE;THIAMINE HYDROCHLOR [Concomitant]
     Indication: PROPHYLAXIS
     Dosage: UNK
     Route: 005
     Dates: end: 20141120
  5. TOSPERAL [Concomitant]
     Indication: PROPHYLAXIS
     Dosage: 25 MG, BID
     Route: 048
     Dates: end: 20141120
  6. DYDRENE [Concomitant]
     Active Substance: NITROGLYCERIN
     Indication: PROPHYLAXIS
     Dosage: 27 MG, QD
     Route: 062
     Dates: end: 20141120
  7. MEDET [Concomitant]
     Active Substance: METFORMIN HYDROCHLORIDE
     Indication: PROPHYLAXIS
     Dosage: 250 MG, BID
     Route: 005
     Dates: end: 20141120
  8. TAMBOCOR [Concomitant]
     Active Substance: FLECAINIDE ACETATE
     Indication: PROPHYLAXIS
     Dosage: 50 MG, BID
     Route: 048
     Dates: start: 20141017, end: 20141120
  9. GLACTIV [Concomitant]
     Active Substance: SITAGLIPTIN
     Indication: PROPHYLAXIS
     Dosage: 50 MG, QD
     Route: 048
     Dates: end: 20141120

REACTIONS (1)
  - Brain stem haemorrhage [Fatal]

NARRATIVE: CASE EVENT DATE: 20141121
